FAERS Safety Report 18385057 (Version 8)
Quarter: 2023Q2

REPORT INFORMATION
  Report Type: Other
  Country: JP (occurrence: JP)
  Receive Date: 20201014
  Receipt Date: 20230421
  Transmission Date: 20230722
  Serious: Yes (Death, Hospitalization, Other)
  Sender: FDA-Public Use
  Company Number: JP-CHUGAI-A2020045152ROCHE

PATIENT
  Age: 71 Year
  Sex: Female
  Weight: 42 kg

DRUGS (2)
  1. ENTRECTINIB [Suspect]
     Active Substance: ENTRECTINIB
     Indication: Non-small cell lung cancer
     Route: 048
     Dates: start: 20200805, end: 20200922
  2. ENTRECTINIB [Suspect]
     Active Substance: ENTRECTINIB
     Dosage: 400 MILLIGRAM, QD
     Route: 048

REACTIONS (8)
  - Disease progression [Fatal]
  - Pulmonary toxicity [Not Recovered/Not Resolved]
  - Pneumonitis [Recovering/Resolving]
  - Blood creatinine increased [Recovering/Resolving]
  - Gait disturbance [Unknown]
  - Ataxia [Recovered/Resolved]
  - Dizziness [Recovered/Resolved]
  - Neutrophil count decreased [Unknown]

NARRATIVE: CASE EVENT DATE: 20200818
